FAERS Safety Report 9153459 (Version 3)
Quarter: 2013Q1

REPORT INFORMATION
  Report Type: Spontaneous
  Country: PT (occurrence: None)
  Receive Date: 20130204
  Receipt Date: 20130318
  Transmission Date: 20140127
  Serious: Yes (Life-Threatening)
  Sender: FDA-Public Use
  Company Number: 1583419

PATIENT
  Age: 48 Year
  Sex: Female
  Weight: 78 kg

DRUGS (10)
  1. ATRACURIUM BESYLATE [Suspect]
     Indication: NEUROMUSCULAR BLOCKING THERAPY
     Dosage: TOTAL
     Route: 042
     Dates: start: 20130111, end: 20130111
  2. CEFAZOLIN [Suspect]
     Indication: INFECTION PROPHYLAXIS
     Dosage: TOTAL
     Route: 042
     Dates: start: 20130111, end: 20130111
  3. PARACETAMOL [Suspect]
     Indication: PROCEDURAL PAIN
     Dosage: TOTAL
     Route: 042
     Dates: start: 20130111, end: 20130111
  4. MIDAZOLAM [Suspect]
     Indication: INDUCTION OF ANAESTHESIA
     Dosage: TOTAL
     Route: 042
     Dates: start: 20130111, end: 20130111
  5. FENTANYL [Suspect]
     Indication: INDUCTION OF ANAESTHESIA
     Dosage: TOTAL
     Route: 042
     Dates: start: 20130111, end: 20130111
  6. PATENT BLUE V /00168401/ [Suspect]
     Indication: DIAGNOSTIC PROCEDURE
     Dosage: TOTAL
     Route: 058
     Dates: start: 20130111, end: 20130111
  7. PROPOFOL [Suspect]
     Indication: INDUCTION OF ANAESTHESIA
     Dosage: TOTAL
     Route: 042
     Dates: start: 20130111, end: 20130111
  8. SUXAMETHONIUM [Suspect]
     Indication: INDUCTION OF ANAESTHESIA
     Dosage: TOTAL
     Route: 042
     Dates: start: 20130111, end: 20130111
  9. PANTOPRAZOL [Concomitant]
  10. ORAL CONTRACEPTIVE (NOS) [Concomitant]

REACTIONS (3)
  - Anaphylactic shock [None]
  - Infusion site oedema [None]
  - Rash maculo-papular [None]
